FAERS Safety Report 9773853 (Version 2)
Quarter: 2014Q1

REPORT INFORMATION
  Report Type: Report from Study
  Country: UY (occurrence: UY)
  Receive Date: 20131220
  Receipt Date: 20140120
  Transmission Date: 20141002
  Serious: Yes (Hospitalization)
  Sender: FDA-Public Use
  Company Number: UY-ROCHE-1320902

PATIENT
  Age: 58 Year
  Sex: Male
  Weight: 142 kg

DRUGS (1)
  1. XENICAL [Suspect]
     Indication: OVERWEIGHT
     Route: 048
     Dates: start: 20130111, end: 20131223

REACTIONS (4)
  - Hypertension [Recovered/Resolved]
  - Diarrhoea [Unknown]
  - Haematochezia [Unknown]
  - Cholelithiasis [Not Recovered/Not Resolved]
